FAERS Safety Report 6581543-1 (Version None)
Quarter: 2010Q1

REPORT INFORMATION
  Report Type: 
  Country: None (occurrence: None)
  Receive Date: 20100215
  Receipt Date: 20100201
  Transmission Date: 20100710
  Serious: Yes (Death)
  Sender: FDA-Public Use
  Company Number: TW-CUBIST-2010S1000056

PATIENT
  Age: 59 Year
  Sex: Male

DRUGS (2)
  1. CUBICIN [Suspect]
     Indication: STAPHYLOCOCCAL BACTERAEMIA
     Route: 042
     Dates: start: 20090625, end: 20090723
  2. CUBICIN [Suspect]
     Indication: OSTEOMYELITIS
     Route: 042
     Dates: start: 20090625, end: 20090723

REACTIONS (3)
  - DRUG INEFFECTIVE [None]
  - FEBRILE NEUTROPENIA [None]
  - SEPTIC SHOCK [None]
